FAERS Safety Report 13527312 (Version 1)
Quarter: 2017Q2

REPORT INFORMATION
  Report Type: Report from Study
  Country: GB (occurrence: GB)
  Receive Date: 20170509
  Receipt Date: 20170509
  Transmission Date: 20170830
  Serious: Yes (Other)
  Sender: FDA-Public Use
  Company Number: GB-ALIMERA SCIENCES LIMITED-GB-IL-2017-003436

PATIENT

DRUGS (13)
  1. SIMVASTATIN. [Concomitant]
     Active Substance: SIMVASTATIN
     Indication: HYPERCHOLESTEROLAEMIA
     Dosage: 40 MG, UNK
  2. CLOPIDOGREL [Concomitant]
     Active Substance: CLOPIDOGREL BISULFATE
     Indication: HYPERTENSION
     Dosage: 75 MG, UNK
  3. GLICLAZIDE 80MG TABLETS [Concomitant]
     Indication: TYPE 2 DIABETES MELLITUS
     Dosage: 80 MG, UNK
  4. HYLO-FORTE [Concomitant]
     Active Substance: HYALURONATE SODIUM
     Indication: DRY EYE
     Dosage: 0.2% EYE DROPS IN BOTH EYE
     Dates: start: 20160106
  5. GLICLAZIDE 160 MG TABLETS [Concomitant]
     Indication: TYPE 2 DIABETES MELLITUS
     Dosage: 160 MG, UNK
     Dates: start: 19800101
  6. PIOGLITAZONE 15MG / METFORMIN 850MG [Concomitant]
     Indication: TYPE 2 DIABETES MELLITUS
     Dosage: IOGLITAZONE 15MG / METFORMIN 850MG TABLETS
  7. HYDROXOCOBALAMIN [Concomitant]
     Active Substance: HYDROXOCOBALAMIN
     Indication: VITAMIN B12 DEFICIENCY
     Dosage: 1MG/ML SOLUTION FOR INJECTION AMPOULES
     Dates: start: 20150806
  8. ADACAL-D3 CHEWABLE TABLETS TUTTI FRUTTI [Concomitant]
     Indication: MINERAL SUPPLEMENTATION
     Dosage: UNK
  9. CLINITAS CARBONER [Concomitant]
     Indication: DRY EYE
     Dosage: 0.2 %, UNK
     Dates: start: 20160114
  10. METFORMIN [Concomitant]
     Active Substance: METFORMIN HYDROCHLORIDE
     Indication: TYPE 2 DIABETES MELLITUS
     Dosage: 850 MG, UNK
     Dates: start: 19860101
  11. LANSOPRAZOLE. [Concomitant]
     Active Substance: LANSOPRAZOLE
     Indication: DYSPEPSIA
     Dosage: 30 MG, UNK
  12. ILUVIEN [Suspect]
     Active Substance: FLUOCINOLONE ACETONIDE
     Indication: DIABETIC RETINAL OEDEMA
     Dosage: 0.25 MCG RIGHT EYE
     Route: 031
     Dates: start: 20140722
  13. PIOGLITAZONE 15MG / METFORMIN 850MG [Concomitant]
     Indication: TYPE 2 DIABETES MELLITUS

REACTIONS (2)
  - Internal limiting membrane peeling [Recovered/Resolved]
  - Vitrectomy [Recovered/Resolved]

NARRATIVE: CASE EVENT DATE: 20170327
